FAERS Safety Report 23934803 (Version 1)
Quarter: 2024Q2

REPORT INFORMATION
  Report Type: Spontaneous
  Country: CN (occurrence: None)
  Receive Date: 20240604
  Receipt Date: 20240604
  Transmission Date: 20240716
  Serious: Yes (Hospitalization)
  Sender: FDA-Public Use
  Company Number: 2024A125916

PATIENT
  Age: 14 Year
  Sex: Female
  Weight: 52 kg

DRUGS (4)
  1. SEROQUEL [Suspect]
     Active Substance: QUETIAPINE FUMARATE
     Indication: Depression
     Route: 048
     Dates: start: 20240512
  2. SEROQUEL [Suspect]
     Active Substance: QUETIAPINE FUMARATE
     Indication: Depression
     Route: 048
     Dates: start: 20240518
  3. OXAZEPAM [Suspect]
     Active Substance: OXAZEPAM
     Indication: Depression
     Route: 048
     Dates: start: 20240512
  4. OXAZEPAM [Suspect]
     Active Substance: OXAZEPAM
     Indication: Depression
     Route: 048
     Dates: start: 20240518

REACTIONS (3)
  - Toxicity to various agents [Recovering/Resolving]
  - Bundle branch block right [Recovering/Resolving]
  - Extra dose administered [Unknown]

NARRATIVE: CASE EVENT DATE: 20240518
